FAERS Safety Report 9380213 (Version 1)
Quarter: 2013Q3

REPORT INFORMATION
  Report Type: Spontaneous
  Country: US (occurrence: None)
  Receive Date: 20130701
  Receipt Date: 20130701
  Transmission Date: 20140515
  Serious: Yes (Other)
  Sender: FDA-Public Use
  Company Number: None

PATIENT
  Sex: Female
  Weight: 78.02 kg

DRUGS (2)
  1. RAPAFLO [Suspect]
     Indication: DYSURIA
     Route: 048
     Dates: start: 20121101, end: 20130523
  2. RAPAFLO [Suspect]
     Indication: URINARY RETENTION
     Route: 048
     Dates: start: 20121101, end: 20130523

REACTIONS (7)
  - Sinus congestion [None]
  - Rhinorrhoea [None]
  - Cervical cyst [None]
  - Ovarian cyst [None]
  - Hypoaesthesia [None]
  - Vein disorder [None]
  - Vulvovaginal dryness [None]
